FAERS Safety Report 14236819 (Version 8)
Quarter: 2025Q3

REPORT INFORMATION
  Report Type: Report from Study
  Country: CA (occurrence: CA)
  Receive Date: 20171129
  Receipt Date: 20250917
  Transmission Date: 20251021
  Serious: Yes (Hospitalization, Other)
  Sender: ROCHE
  Company Number: CA-002147023-PHHY2017CA174138

PATIENT
  Age: 55 Year
  Sex: Female
  Weight: 89.0 kg

DRUGS (5)
  1. XOLAIR [Suspect]
     Active Substance: OMALIZUMAB
     Indication: Asthma
     Route: 058
     Dates: start: 20130417
  2. XOLAIR [Suspect]
     Active Substance: OMALIZUMAB
     Route: 065
     Dates: start: 20171010
  3. XOLAIR [Suspect]
     Active Substance: OMALIZUMAB
     Route: 058
     Dates: start: 20181113
  4. XOLAIR [Suspect]
     Active Substance: OMALIZUMAB
     Route: 058
  5. XOLAIR [Suspect]
     Active Substance: OMALIZUMAB
     Route: 058
     Dates: start: 20220815

REACTIONS (29)
  - Small intestinal obstruction [Unknown]
  - Colitis ulcerative [Unknown]
  - Oxygen saturation decreased [Unknown]
  - Pulmonary function test abnormal [Unknown]
  - Sensitivity to weather change [Unknown]
  - Smoke sensitivity [Unknown]
  - Perfume sensitivity [Unknown]
  - Eye pruritus [Unknown]
  - Rhinorrhoea [Unknown]
  - Obstructive airways disorder [Unknown]
  - Eczema [Unknown]
  - Chest discomfort [Unknown]
  - Blood immunoglobulin E increased [Unknown]
  - Upper-airway cough syndrome [Unknown]
  - Illness [Unknown]
  - Viral upper respiratory tract infection [Unknown]
  - Asthma [Unknown]
  - Vomiting [Unknown]
  - Nasal congestion [Unknown]
  - Cough [Unknown]
  - Nasopharyngitis [Unknown]
  - Dust allergy [Unknown]
  - Gait disturbance [Unknown]
  - Allergic sinusitis [Unknown]
  - Malaise [Unknown]
  - Dyspnoea [Unknown]
  - Hypersensitivity [Unknown]
  - Throat irritation [Unknown]
  - Forced expiratory volume decreased [Unknown]

NARRATIVE: CASE EVENT DATE: 20170101
